FAERS Safety Report 12223252 (Version 1)
Quarter: 2016Q1

REPORT INFORMATION
  Report Type: Spontaneous
  Country: US (occurrence: US)
  Receive Date: 20160330
  Receipt Date: 20160330
  Transmission Date: 20160526
  Serious: Yes (Hospitalization)
  Sender: FDA-Public Use
  Company Number: US-BAYER-2016-058167

PATIENT
  Age: 88 Year
  Sex: Female

DRUGS (8)
  1. APIXABAN [Concomitant]
     Active Substance: APIXABAN
     Dosage: 5 MG, BID
     Route: 048
  2. CENTRUM SILVER [Concomitant]
     Active Substance: MINERALS\VITAMINS
     Dosage: 1 DF, QD
     Route: 048
  3. LEVOTHYROXINE. [Concomitant]
     Active Substance: LEVOTHYROXINE
     Dosage: 125 MG, QD
     Route: 048
  4. LIPITOR [Concomitant]
     Active Substance: ATORVASTATIN CALCIUM
     Dosage: 1 DF, HS
     Route: 048
  5. CALTRATE + D [CALCIUM CARBONATE,COLECALCIFEROL] [Concomitant]
     Dosage: 600 D3UNK, BID
  6. METOPROLOL. [Concomitant]
     Active Substance: METOPROLOL
     Dosage: 100 MG, QD
     Route: 048
  7. ALEVE [Suspect]
     Active Substance: NAPROXEN SODIUM
  8. NITROFURANTOIN. [Concomitant]
     Active Substance: NITROFURANTOIN
     Dosage: 1 DF, QD
     Route: 048

REACTIONS (2)
  - Atrial fibrillation [Recovered/Resolved]
  - Hypersensitivity [None]

NARRATIVE: CASE EVENT DATE: 20160216
